FAERS Safety Report 6329715-5 (Version None)
Quarter: 2009Q3

REPORT INFORMATION
  Report Type: 
  Country: None (occurrence: None)
  Receive Date: 20090826
  Receipt Date: 20090818
  Transmission Date: 20100115
  Serious: Yes (Other)
  Sender: FDA-Public Use
  Company Number: DE-ABBOTT-09P-062-0573682-00

PATIENT
  Sex: Male
  Weight: 88 kg

DRUGS (4)
  1. HUMIRA [Suspect]
     Indication: PSORIASIS
     Route: 058
     Dates: start: 20090224, end: 20090630
  2. TELMISARTAN (MICARDIS 40) [Concomitant]
     Indication: DRUG USE FOR UNKNOWN INDICATION
  3. ALLOPURINOL 150 [Concomitant]
     Indication: DRUG USE FOR UNKNOWN INDICATION
  4. DILTIAZEM (DILTA HEXAL 120) [Concomitant]
     Indication: DRUG USE FOR UNKNOWN INDICATION

REACTIONS (3)
  - ERYTHEMA [None]
  - OEDEMA PERIPHERAL [None]
  - SKIN EXFOLIATION [None]
